FAERS Safety Report 5762778-4 (Version None)
Quarter: 2008Q2

REPORT INFORMATION
  Report Type: 
  Country: None (occurrence: None)
  Receive Date: 20080609
  Receipt Date: 20080605
  Transmission Date: 20081010
  Serious: Yes (Hospitalization, Other)
  Sender: FDA-Public Use
  Company Number: FR-RB-001777-08

PATIENT
  Age: 21 Year
  Sex: Female

DRUGS (3)
  1. SUBUTEX [Suspect]
     Dosage: UNKNOWN
     Route: 065
     Dates: start: 20070110
  2. METHADONE HCL [Concomitant]
     Indication: DRUG USE FOR UNKNOWN INDICATION
  3. TARDYFERON [Concomitant]
     Indication: DRUG USE FOR UNKNOWN INDICATION

REACTIONS (3)
  - OSTEOMYELITIS [None]
  - SUBSTANCE ABUSE [None]
  - WOUND [None]
